FAERS Safety Report 14168821 (Version 1)
Quarter: 2017Q4

REPORT INFORMATION
  Report Type: Spontaneous
  Country: PT (occurrence: PT)
  Receive Date: 20171107
  Receipt Date: 20171107
  Transmission Date: 20180321
  Serious: Yes (Other)
  Sender: FDA-Public Use
  Company Number: PT-009507513-1711PRT001445

PATIENT
  Age: 54 Year
  Sex: Female

DRUGS (2)
  1. METHYLPREDNISOLONE ACETATE. [Concomitant]
     Active Substance: METHYLPREDNISOLONE ACETATE
     Indication: PLANTAR FASCIITIS
     Dosage: SIX CI SUSPENSIONS
  2. BETAMETHASONE. [Suspect]
     Active Substance: BETAMETHASONE
     Indication: PLANTAR FASCIITIS
     Dosage: SIX CI SUSPENSIONS

REACTIONS (2)
  - Fat necrosis [Unknown]
  - Tendon calcification [Unknown]
